FAERS Safety Report 4608064-7 (Version None)
Quarter: 2005Q2

REPORT INFORMATION
  Report Type: 
  Country: None (occurrence: None)
  Receive Date: 20050303
  Receipt Date: 20041102
  Transmission Date: 20051028
  Serious: No
  Sender: FDA-Public Use
  Company Number: 210186

PATIENT
  Age: 30 Year
  Sex: Female

DRUGS (4)
  1. XOLAIR [Suspect]
     Indication: ASTHMA
     Dosage: 300 MG, Q2W, SUBCUTANEOUS
     Route: 058
     Dates: start: 20040410, end: 20041020
  2. ALLERGY MEDICATION NOS [Concomitant]
  3. ORAL CONTRACEPTIVE [Concomitant]
  4. CATAFLAM [Concomitant]

REACTIONS (1)
  - TACHYCARDIA [None]
